FAERS Safety Report 16902335 (Version 2)
Quarter: 2019Q4

REPORT INFORMATION
  Report Type: Spontaneous
  Country: JP (occurrence: JP)
  Receive Date: 20191010
  Receipt Date: 20191114
  Transmission Date: 20200122
  Serious: Yes (Hospitalization, Disabling, Other)
  Sender: FDA-Public Use
  Company Number: JP-GLAXOSMITHKLINE-JP2019JPN179044

PATIENT
  Age: 76 Year
  Sex: Male
  Weight: 50 kg

DRUGS (15)
  1. VALACICLOVIR HYDROCHLORIDE [Suspect]
     Active Substance: VALACYCLOVIR HYDROCHLORIDE
     Indication: HERPES ZOSTER
     Dosage: 1000 MG, TID
     Route: 048
     Dates: start: 20190925, end: 20190928
  2. ROSUVASTATIN OD TABLETS [Concomitant]
     Dosage: 5 MG, QD
     Route: 048
     Dates: start: 20190919, end: 20190930
  3. OLMESARTAN OD TABLETS [Concomitant]
     Dosage: 10 MG, BID
     Route: 048
     Dates: start: 20190919, end: 20190930
  4. EQUA TABLETS [Concomitant]
     Dosage: 50 MG, BID
     Dates: start: 20190921, end: 20190928
  5. BISONO TAPE [Concomitant]
     Dosage: 1 DF, QD
     Dates: start: 20190929, end: 20190930
  6. BAYASPIRIN TABLETS [Concomitant]
     Indication: THALAMIC INFARCTION
     Dosage: 100 MG, QD
     Dates: start: 20190919, end: 20190926
  7. ARGATROBAN HYDRATE [Concomitant]
     Active Substance: ARGATROBAN
     Indication: THALAMIC INFARCTION
     Dosage: UNK
     Dates: start: 20190919
  8. AMLODIPINE OD TABLETS [Concomitant]
     Active Substance: AMLODIPINE BESYLATE
     Dosage: 5 MG, BID
     Route: 048
     Dates: start: 20190919, end: 20190930
  9. TARLIGE [Concomitant]
     Active Substance: MIROGABALIN BESYLATE
     Indication: HERPES ZOSTER
     Dosage: 5 MG, BID
     Route: 048
     Dates: start: 20190925, end: 20190928
  10. CILOSTAZOL OD TABLET [Concomitant]
     Indication: TRANSIENT ISCHAEMIC ATTACK
     Dosage: 100 MG, BID
     Route: 048
     Dates: start: 20190929, end: 20190930
  11. LANSOPRAZOLE-OD TABLETS [Concomitant]
     Dosage: 15 MG, QD
     Route: 048
     Dates: start: 20190919, end: 20190930
  12. EDARAVONE [Concomitant]
     Active Substance: EDARAVONE
     Indication: THALAMIC INFARCTION
     Dosage: UNK
     Dates: start: 20190919
  13. CLOPIDOGREL SULFATE TABLETS [Concomitant]
     Indication: THALAMIC INFARCTION
     Dosage: 75 MG, QD
     Dates: start: 20190919, end: 20190928
  14. ETHYL ICOSAPENTATE [Concomitant]
     Active Substance: ICOSAPENT ETHYL
     Dosage: 900 MG, BID
     Dates: start: 20190919, end: 20190928
  15. ROZEREM TABLETS [Concomitant]
     Dosage: 8 MG, QD
     Route: 048
     Dates: start: 20190919, end: 20190930

REACTIONS (8)
  - Transient ischaemic attack [Unknown]
  - Hyperkalaemia [Unknown]
  - Altered state of consciousness [Unknown]
  - Pyrexia [Unknown]
  - Depressed level of consciousness [Unknown]
  - Acute kidney injury [Not Recovered/Not Resolved]
  - Dyslalia [Unknown]
  - Neurosis [Unknown]

NARRATIVE: CASE EVENT DATE: 20190928
